FAERS Safety Report 8238523-X (Version None)
Quarter: 2012Q1

REPORT INFORMATION
  Report Type: 
  Country: None (occurrence: None)
  Receive Date: 20120327
  Receipt Date: 20120319
  Transmission Date: 20120608
  Serious: Yes (Other)
  Sender: FDA-Public Use
  Company Number: US-BAYER-2012-010509

PATIENT
  Age: 35 Year
  Sex: Female
  Weight: 68.027 kg

DRUGS (1)
  1. MIRENA [Suspect]
     Indication: CONTRACEPTION
     Dosage: 20 MCG/24HR, CONT
     Dates: start: 20111024, end: 20120120

REACTIONS (2)
  - DEVICE DISLOCATION [None]
  - GENITAL HAEMORRHAGE [None]
